FAERS Safety Report 25945171 (Version 1)
Quarter: 2025Q4

REPORT INFORMATION
  Report Type: Spontaneous
  Country: EU (occurrence: EU)
  Receive Date: 20251021
  Receipt Date: 20251021
  Transmission Date: 20260118
  Serious: Yes (Hospitalization)
  Sender: MYLAN
  Company Number: EU-MYLANLABS-2025M1088211

PATIENT
  Age: 38 Year
  Sex: Female

DRUGS (24)
  1. EPLERENONE [Suspect]
     Active Substance: EPLERENONE
     Indication: Ejection fraction decreased
     Dosage: 25 MILLIGRAM, QD
  2. EPLERENONE [Suspect]
     Active Substance: EPLERENONE
     Dosage: 25 MILLIGRAM, QD
  3. IVABRADINE [Suspect]
     Active Substance: IVABRADINE
     Indication: Ejection fraction decreased
     Dosage: 10 MILLIGRAM, QD
  4. IVABRADINE [Suspect]
     Active Substance: IVABRADINE
     Dosage: 10 MILLIGRAM, QD
  5. IVABRADINE [Suspect]
     Active Substance: IVABRADINE
     Dosage: 10 MILLIGRAM, QD
  6. FUROSEMIDE [Suspect]
     Active Substance: FUROSEMIDE
     Indication: Ejection fraction decreased
     Dosage: UNK
  7. LEVOSIMENDAN [Suspect]
     Active Substance: LEVOSIMENDAN
     Indication: Ejection fraction decreased
     Dosage: 12.5 MILLIGRAM, QD
  8. LEVOSIMENDAN [Suspect]
     Active Substance: LEVOSIMENDAN
     Dosage: 12.5 MILLIGRAM, QD
  9. LEVOSIMENDAN [Suspect]
     Active Substance: LEVOSIMENDAN
     Dosage: 12.5 MILLIGRAM, QD
  10. DOBUTAMINE [Suspect]
     Active Substance: DOBUTAMINE HYDROCHLORIDE
     Indication: Ejection fraction decreased
     Dosage: UNK
  11. RAMIPRIL [Suspect]
     Active Substance: RAMIPRIL
     Indication: Ejection fraction decreased
     Dosage: 5 MILLIGRAM, QD
  12. RAMIPRIL [Suspect]
     Active Substance: RAMIPRIL
     Dosage: 2.5 MILLIGRAM, QD
  13. RAMIPRIL [Suspect]
     Active Substance: RAMIPRIL
     Dosage: 1.25 MILLIGRAM, QD
  14. CARVEDILOL [Suspect]
     Active Substance: CARVEDILOL
     Indication: Ejection fraction decreased
     Dosage: 12.5 MILLIGRAM, QD
  15. CARVEDILOL [Suspect]
     Active Substance: CARVEDILOL
     Dosage: 7.5 MILLIGRAM, QD
  16. METOPROLOL [Suspect]
     Active Substance: METOPROLOL
     Indication: Ejection fraction decreased
     Dosage: 50 MILLIGRAM, QD
  17. METOPROLOL [Suspect]
     Active Substance: METOPROLOL
     Dosage: 100 MILLIGRAM, QD
  18. TORSEMIDE [Suspect]
     Active Substance: TORSEMIDE
     Indication: Ejection fraction decreased
     Dosage: 5 MILLIGRAM, QD
  19. TORSEMIDE [Suspect]
     Active Substance: TORSEMIDE
     Dosage: 65 MILLIGRAM, QD
  20. SPIRONOLACTONE [Suspect]
     Active Substance: SPIRONOLACTONE
     Indication: Ejection fraction decreased
     Dosage: 25 MILLIGRAM, QD
  21. SACUBITRIL\VALSARTAN [Suspect]
     Active Substance: SACUBITRIL\VALSARTAN
     Indication: Ejection fraction decreased
     Dosage: UNK UNK, QD (48/52 MG/DAY)
  22. WARFARIN [Suspect]
     Active Substance: WARFARIN
     Indication: Ejection fraction decreased
     Dosage: UNK (ACCORDING TO INR)
  23. CLOPIDOGREL BISULFATE [Suspect]
     Active Substance: CLOPIDOGREL BISULFATE
     Indication: Ejection fraction decreased
     Dosage: 75 MILLIGRAM, QD
  24. SILDENAFIL [Suspect]
     Active Substance: SILDENAFIL
     Indication: Ejection fraction decreased
     Dosage: 50 MILLIGRAM, QD

REACTIONS (2)
  - Cardiac failure [Unknown]
  - Therapeutic product effect incomplete [Unknown]
